FAERS Safety Report 9995422 (Version 2)
Quarter: 2014Q2

REPORT INFORMATION
  Report Type: Spontaneous
  Country: DE (occurrence: DE)
  Receive Date: 20140311
  Receipt Date: 20140409
  Transmission Date: 20141212
  Serious: Yes (Other)
  Sender: FDA-Public Use
  Company Number: DE-ROCHE-1357401

PATIENT
  Age: 70 Year
  Sex: Male
  Weight: 70 kg

DRUGS (7)
  1. MABTHERA [Suspect]
     Indication: B-CELL LYMPHOMA
     Route: 042
     Dates: start: 201107
  2. MABTHERA [Suspect]
     Route: 065
  3. BENDAMUSTINE [Concomitant]
     Indication: B-CELL LYMPHOMA
  4. PREDNISOLON [Concomitant]
     Indication: B-CELL LYMPHOMA
  5. ASS100 [Concomitant]
     Indication: CORONARY ARTERY DISEASE
     Route: 065
  6. OMEPRAZOL [Concomitant]
     Indication: GASTRITIS
     Route: 065
  7. L-THYROXIN [Concomitant]
     Indication: HYPOTHYROIDISM
     Route: 065

REACTIONS (1)
  - White blood cell disorder [Unknown]
